FAERS Safety Report 10779018 (Version 1)
Quarter: 2015Q1

REPORT INFORMATION
  Report Type: Spontaneous
  Country: US (occurrence: None)
  Receive Date: 20150206
  Receipt Date: 20150206
  Transmission Date: 20150721
  Serious: Yes (Other)
  Sender: FDA-Public Use
  Company Number: 2015SA009468

PATIENT
  Sex: Male

DRUGS (1)
  1. CORTIZONE 10 [Suspect]
     Active Substance: HYDROCORTISONE
     Dates: start: 2013

REACTIONS (2)
  - Application site burn [None]
  - Skin discolouration [None]

NARRATIVE: CASE EVENT DATE: 2013
